FAERS Safety Report 6907640-6 (Version None)
Quarter: 2010Q3

REPORT INFORMATION
  Report Type: 
  Country: None (occurrence: None)
  Receive Date: 20100802
  Receipt Date: 20100622
  Transmission Date: 20110219
  Serious: Yes (Life-Threatening)
  Sender: FDA-Public Use
  Company Number: 010273

PATIENT
  Age: 54 Year
  Sex: Male

DRUGS (10)
  1. PLETAL [Suspect]
     Indication: VENOUS INSUFFICIENCY
     Dosage: 100 MG, ORAL
     Route: 048
     Dates: start: 20100520, end: 20100521
  2. CLOPIDOGREL [Suspect]
     Indication: VENOUS INSUFFICIENCY
     Dosage: 75 MG, ORAL
     Route: 048
     Dates: start: 20100520, end: 20100521
  3. HIDROXIL B12 B6 B1 (HYDROXOCOBALAMIN, PYRIDOXINE HYDROCHLORIDE, THIAMI [Suspect]
     Dosage: ORAL
     Route: 048
     Dates: start: 20100520, end: 20100521
  4. GABAPENTIN [Suspect]
     Indication: NEUROPATHY PERIPHERAL
     Dosage: 300 MG, QD, ORAL
     Route: 048
     Dates: start: 20100520, end: 20100521
  5. METFORMIN HCL [Concomitant]
  6. INSULIN (INSULIN) [Concomitant]
  7. OMEPRAZOLE [Concomitant]
  8. ALLOPURINOL [Concomitant]
  9. SUTRIL (TORASEMIDE) [Concomitant]
  10. IRON (IRON) [Concomitant]

REACTIONS (4)
  - DIZZINESS [None]
  - EAR HAEMORRHAGE [None]
  - URINARY RETENTION [None]
  - VISUAL ACUITY REDUCED [None]
